FAERS Safety Report 8551526 (Version 2)
Quarter: 2012Q4

REPORT INFORMATION
  Report Type: 
  Country: US (occurrence: US)
  Receive Date: 20120508
  Receipt Date: 20120913
  Transmission Date: 20130627
  Serious: Yes (Hospitalization)
  Sender: FDA-Public Use
  Company Number: US-BAYER-2012-043023

PATIENT
  Age: 18 Year
  Sex: Female
  Weight: 48.98 kg

DRUGS (8)
  1. YAZ [Suspect]
     Indication: CONTRACEPTION
     Dosage: UNK
     Dates: start: 20071031, end: 20080330
  2. YAZ [Suspect]
     Indication: ACNE
  3. AURALGAN [Concomitant]
     Dosage: 2-4 drops in painful ear every 2hours as needed
     Route: 001
     Dates: start: 20080220
  4. MOTRIN [Concomitant]
     Dosage: UNK UNK, PRN
     Route: 048
     Dates: start: 20080220
  5. ZYRTEC [Concomitant]
     Dosage: 10 mg, daily
     Route: 048
     Dates: start: 20080220
  6. SUDAFED [Concomitant]
     Dosage: UNK UNK, PRN
     Route: 048
     Dates: start: 20080220
  7. NAPROXEN [Concomitant]
     Dosage: 500 mg, UNK
     Route: 048
     Dates: start: 20080311
  8. VICODIN [Concomitant]

REACTIONS (5)
  - Deep vein thrombosis [Recovered/Resolved]
  - Pain in extremity [Recovered/Resolved]
  - Oedema peripheral [Recovered/Resolved]
  - Pain [None]
  - Injury [None]
